FAERS Safety Report 11856673 (Version 1)
Quarter: 2015Q4

REPORT INFORMATION
  Report Type: Spontaneous
  Country: US (occurrence: None)
  Receive Date: 20151218
  Receipt Date: 20151218
  Transmission Date: 20160305
  Serious: Yes (Hospitalization)
  Sender: FDA-Public Use
  Company Number: None

PATIENT
  Age: 19 Year
  Sex: Male

DRUGS (9)
  1. ZOLPIDEM [Suspect]
     Active Substance: ZOLPIDEM\ZOLPIDEM TARTRATE
     Indication: INSOMNIA
     Dates: start: 20050701, end: 20050831
  2. ZOLOFT [Concomitant]
     Active Substance: SERTRALINE HYDROCHLORIDE
  3. ABILIFY [Concomitant]
     Active Substance: ARIPIPRAZOLE
  4. BACTRIM [Concomitant]
     Active Substance: SULFAMETHOXAZOLE\TRIMETHOPRIM
  5. WELLBUTRIN [Concomitant]
     Active Substance: BUPROPION HYDROCHLORIDE
  6. EFFEXOR [Concomitant]
     Active Substance: VENLAFAXINE HYDROCHLORIDE
  7. TRAZODONE [Concomitant]
     Active Substance: TRAZODONE HYDROCHLORIDE
  8. LEXAPRO [Concomitant]
     Active Substance: ESCITALOPRAM OXALATE
  9. ZOLPIDEM [Suspect]
     Active Substance: ZOLPIDEM\ZOLPIDEM TARTRATE
     Indication: INSOMNIA
     Route: 048

REACTIONS (28)
  - Sedation [None]
  - Abnormal dreams [None]
  - Functional gastrointestinal disorder [None]
  - Neck pain [None]
  - Confusional state [None]
  - Nausea [None]
  - Pain in extremity [None]
  - Headache [None]
  - Hangover [None]
  - Eye pain [None]
  - Muscle twitching [None]
  - Syncope [None]
  - Ocular hyperaemia [None]
  - Somnolence [None]
  - Eyelid disorder [None]
  - Chest pain [None]
  - Emotional disorder [None]
  - Disturbance in attention [None]
  - Muscle disorder [None]
  - Arrhythmia [None]
  - Withdrawal syndrome [None]
  - Nightmare [None]
  - Dizziness [None]
  - Vision blurred [None]
  - Disorientation [None]
  - Fatigue [None]
  - Dry eye [None]
  - Somnambulism [None]

NARRATIVE: CASE EVENT DATE: 20050701
